FAERS Safety Report 5383683-1 (Version None)
Quarter: 2007Q3

REPORT INFORMATION
  Report Type: 
  Country: None (occurrence: None)
  Receive Date: 20070706
  Receipt Date: 20070625
  Transmission Date: 20080115
  Serious: Yes (Hospitalization)
  Sender: FDA-Public Use
  Company Number: CERZ-11749

PATIENT
  Age: 57 Year
  Sex: Female
  Weight: 73.3 kg

DRUGS (7)
  1. CEREZYME [Suspect]
     Indication: GAUCHER'S DISEASE
     Dosage: 4400 UNITS Q2WKS IV
     Route: 042
  2. CEREZYME [Suspect]
  3. CLARITIN. MFR: SCHERING CORPORATION [Concomitant]
  4. CLONIDINE [Concomitant]
  5. DIOVAN [Concomitant]
  6. FOSAMAX. MFR: MERCK SHARP + DOME [Concomitant]
  7. LASIX. MFR: HOECHST PHARMACEUTICALS, INCORPORATED [Concomitant]

REACTIONS (3)
  - ARTHRITIS INFECTIVE [None]
  - CENTRAL LINE INFECTION [None]
  - STAPHYLOCOCCAL INFECTION [None]
